FAERS Safety Report 17111472 (Version 1)
Quarter: 2019Q4

REPORT INFORMATION
  Report Type: Spontaneous
  Country: US (occurrence: US)
  Receive Date: 20191203
  Receipt Date: 20191203
  Transmission Date: 20200122
  Serious: No
  Sender: FDA-Public Use
  Company Number: None

PATIENT
  Age: 53 Year
  Sex: Female

DRUGS (2)
  1. VANCOMYCIN [Suspect]
     Active Substance: VANCOMYCIN
     Indication: HAEMATOMA
     Route: 042
     Dates: start: 20191115, end: 20191128
  2. VANCOMYCIN [Suspect]
     Active Substance: VANCOMYCIN
     Indication: HAEMATOMA
     Route: 042
     Dates: start: 20191115, end: 20191128

REACTIONS (4)
  - Fatigue [None]
  - Malaise [None]
  - Leukopenia [None]
  - Pruritus [None]

NARRATIVE: CASE EVENT DATE: 20191128
